FAERS Safety Report 21614756 (Version 2)
Quarter: 2022Q4

REPORT INFORMATION
  Report Type: Report from Study
  Country: US (occurrence: US)
  Receive Date: 20221118
  Receipt Date: 20221129
  Transmission Date: 20230113
  Serious: Yes (Hospitalization)
  Sender: FDA-Public Use
  Company Number: US-PFIZER INC-PV202200099728

PATIENT
  Age: 65 Year
  Sex: Male
  Weight: 76.2 kg

DRUGS (2)
  1. TALAZOPARIB [Suspect]
     Active Substance: TALAZOPARIB
     Dosage: 1 MG, QD
     Dates: start: 20220919, end: 20221115
  2. BELINOSTAT [Suspect]
     Active Substance: BELINOSTAT
     Dosage: 1000 MG, D1-5 OF 21 DAY CYCLE
     Dates: start: 20220919, end: 20221115

REACTIONS (2)
  - Pneumonia [Unknown]
  - Embolism [Unknown]

NARRATIVE: CASE EVENT DATE: 20221105
